FAERS Safety Report 16281623 (Version 2)
Quarter: 2020Q3

REPORT INFORMATION
  Report Type: Spontaneous
  Country: US (occurrence: US)
  Receive Date: 20190507
  Receipt Date: 20200714
  Transmission Date: 20201102
  Serious: No
  Sender: FDA-Public Use
  Company Number: US-PFIZER INC-2019187094

PATIENT
  Age: 46 Year
  Sex: Female

DRUGS (1)
  1. EUCRISA [Suspect]
     Active Substance: CRISABOROLE
     Indication: DERMATITIS ALLERGIC
     Dosage: UNK, AS NEEDED [TWICE A DAY AS NEEDED]

REACTIONS (3)
  - Eyelid irritation [Recovered/Resolved]
  - Product use issue [Unknown]
  - Therapeutic product effect incomplete [Unknown]
